FAERS Safety Report 9518943 (Version 1)
Quarter: 2013Q3

REPORT INFORMATION
  Report Type: Spontaneous
  Country: US (occurrence: US)
  Receive Date: 20130912
  Receipt Date: 20130912
  Transmission Date: 20140515
  Serious: No
  Sender: FDA-Public Use
  Company Number: US-PFIZER INC-2013260954

PATIENT
  Age: 60 Year
  Sex: Female

DRUGS (1)
  1. AROMASIN [Suspect]
     Indication: BREAST CANCER
     Dosage: 25 MG, 1X/DAY (1 TABLET DAILY)
     Dates: start: 20090326

REACTIONS (3)
  - Disease progression [Unknown]
  - Breast cancer [Unknown]
  - Metastases to lung [Unknown]
